FAERS Safety Report 4704201-4 (Version None)
Quarter: 2005Q2

REPORT INFORMATION
  Report Type: 
  Country: None (occurrence: None)
  Receive Date: 20050630
  Receipt Date: 20050627
  Transmission Date: 20051028
  Serious: Yes (Death)
  Sender: FDA-Public Use
  Company Number: ES-BRISTOL-MYERS SQUIBB COMPANY-13018205

PATIENT
  Age: 20 Day
  Sex: Female
  Weight: 3 kg

DRUGS (3)
  1. ATAZANAVIR [Suspect]
     Dosage: THERAPY DISCONTINUED ON 06-SEP-2004 AND RE-STARTED ON 06-OCT-2004.
     Route: 064
     Dates: start: 20030203
  2. TENOFOVIR [Concomitant]
     Route: 064
     Dates: start: 20030203, end: 20040906
  3. ZIDOVUDINE [Concomitant]
     Route: 064
     Dates: start: 20030203

REACTIONS (1)
  - LUNG NEOPLASM [None]
